FAERS Safety Report 26181237 (Version 3)
Quarter: 2025Q4

REPORT INFORMATION
  Report Type: Spontaneous
  Country: CA (occurrence: CA)
  Receive Date: 20251221
  Receipt Date: 20251225
  Transmission Date: 20260117
  Serious: Yes (Other)
  Sender: REGENERON
  Company Number: CA-SANOFI-02743494

PATIENT
  Age: 73 Year
  Sex: Female

DRUGS (1)
  1. PRALUENT [Suspect]
     Active Substance: ALIROCUMAB
     Indication: Product used for unknown indication
     Dosage: UNK, SOLUTION FOR INJECTION
     Dates: start: 20250916, end: 20251125

REACTIONS (9)
  - Vitreous detachment [Not Recovered/Not Resolved]
  - Photopsia [Not Recovered/Not Resolved]
  - Vitreous floaters [Not Recovered/Not Resolved]
  - Erythema of eyelid [Recovered/Resolved]
  - Blepharitis [Unknown]
  - Periorbital inflammation [Unknown]
  - Fatigue [Unknown]
  - Rhinorrhoea [Unknown]
  - Vision blurred [Recovering/Resolving]

NARRATIVE: CASE EVENT DATE: 20250101
